FAERS Safety Report 8152000-6 (Version None)
Quarter: 2012Q1

REPORT INFORMATION
  Report Type: 
  Country: None (occurrence: None)
  Receive Date: 20120221
  Receipt Date: 20120216
  Transmission Date: 20120608
  Serious: Yes (Death)
  Sender: FDA-Public Use
  Company Number: US-PFIZER INC-2012042921

PATIENT
  Sex: Female

DRUGS (1)
  1. SUTENT [Suspect]
     Indication: BREAST CANCER
     Dosage: 25 MG, 1X/DAY
     Dates: start: 20111123

REACTIONS (2)
  - DISEASE PROGRESSION [None]
  - BREAST CANCER [None]
